FAERS Safety Report 5670978-7 (Version None)
Quarter: 2008Q1

REPORT INFORMATION
  Report Type: 
  Country: None (occurrence: None)
  Receive Date: 20080318
  Receipt Date: 20080306
  Transmission Date: 20080703
  Serious: Yes (Life-Threatening, Hospitalization)
  Sender: FDA-Public Use
  Company Number: JP-ROCHE-538662

PATIENT
  Age: 46 Year
  Sex: Male

DRUGS (1)
  1. PEGASYS [Suspect]
     Route: 058
     Dates: start: 20060601, end: 20070901

REACTIONS (2)
  - HYPERTENSIVE ENCEPHALOPATHY [None]
  - LACUNAR INFARCTION [None]
